FAERS Safety Report 5914604-8 (Version None)
Quarter: 2008Q4

REPORT INFORMATION
  Report Type: 
  Country: None (occurrence: None)
  Receive Date: 20081008
  Receipt Date: 20080926
  Transmission Date: 20090506
  Serious: Yes (Death, Other)
  Sender: FDA-Public Use
  Company Number: 2008-03419

PATIENT
  Age: 81 Year
  Sex: Male
  Weight: 81.2 kg

DRUGS (4)
  1. VELCADE [Suspect]
     Indication: MULTIPLE MYELOMA
     Dosage: 2.6 MG, INTRAVENOUS
     Route: 042
     Dates: start: 20080908, end: 20080915
  2. DEXAMETHASONE TAB [Suspect]
     Indication: MULTIPLE MYELOMA
     Dosage: 20 MG, ORAL
     Route: 048
     Dates: start: 20080908, end: 20080915
  3. FAMVIR [Concomitant]
  4. ASPIRIN [Concomitant]

REACTIONS (2)
  - ANAEMIA [None]
  - SUDDEN DEATH [None]
